FAERS Safety Report 20999649 (Version 5)
Quarter: 2022Q4

REPORT INFORMATION
  Report Type: Report from Study
  Country: US (occurrence: US)
  Receive Date: 20220623
  Receipt Date: 20221109
  Transmission Date: 20230113
  Serious: Yes (Hospitalization, Other)
  Sender: FDA-Public Use
  Company Number: US-NOVARTISPH-NVSC2022US139841

PATIENT
  Age: 41 Year
  Sex: Male

DRUGS (3)
  1. ENTRESTO [Suspect]
     Active Substance: SACUBITRIL\VALSARTAN
     Indication: Cardiac failure
     Dosage: 1 DOSAGE FORM, BID (24/26 MG)
     Route: 048
     Dates: start: 20220601
  2. ENTRESTO [Suspect]
     Active Substance: SACUBITRIL\VALSARTAN
     Dosage: 1 DOSAGE FORM, BID (49/51 MG)
     Route: 048
  3. ROSUVASTATIN [Concomitant]
     Active Substance: ROSUVASTATIN
     Indication: Blood cholesterol abnormal
     Dosage: 40 MG, QD
     Route: 048
     Dates: start: 20220601

REACTIONS (13)
  - Crohn^s disease [Unknown]
  - Ventricular tachycardia [Unknown]
  - Cardiomyopathy [Not Recovered/Not Resolved]
  - Bradycardia [Unknown]
  - Sinus node dysfunction [Not Recovered/Not Resolved]
  - Chest pain [Not Recovered/Not Resolved]
  - Pollakiuria [Unknown]
  - Weight increased [Unknown]
  - Anxiety [Unknown]
  - Depressed mood [Unknown]
  - Rash [Recovered/Resolved]
  - Pruritus [Recovered/Resolved]
  - Fatigue [Not Recovered/Not Resolved]

NARRATIVE: CASE EVENT DATE: 20220601
